FAERS Safety Report 19973557 (Version 2)
Quarter: 2021Q4

REPORT INFORMATION
  Report Type: Spontaneous
  Country: JP (occurrence: JP)
  Receive Date: 20211020
  Receipt Date: 20211104
  Transmission Date: 20220303
  Serious: Yes (Life-Threatening, Hospitalization)
  Sender: FDA-Public Use
  Company Number: JP-BEH-200813586

PATIENT
  Age: 25 Year
  Sex: Male
  Weight: 53 kg

DRUGS (8)
  1. ALBUMINAR-5 [Suspect]
     Active Substance: ALBUMIN HUMAN
     Indication: Surgery
     Dosage: DAILY DOSE QUANTITY: 500, DAILY DOSE UNIT: ML
     Route: 042
     Dates: start: 20070521, end: 20070521
  2. DIPRIVAN [Concomitant]
     Active Substance: PROPOFOL
  3. ULTIVA [Concomitant]
     Active Substance: REMIFENTANIL HYDROCHLORIDE
     Indication: Anaesthesia
     Route: 042
     Dates: start: 20070521
  4. Flumarin [Concomitant]
     Indication: Surgery
     Dosage: DAILY DOSE QUANTITY: 1, DAILY DOSE UNIT: G
     Route: 042
     Dates: start: 20070521
  5. EPINEPHRINE [Concomitant]
     Active Substance: EPINEPHRINE
     Indication: Hypotension
     Dosage: DAILY DOSE QUANTITY: 1.1, DAILY DOSE UNIT: MG
     Route: 042
     Dates: start: 20070521
  6. GASTER [Concomitant]
     Active Substance: FAMOTIDINE
     Indication: Stress
     Dosage: DAILY DOSE QUANTITY: 20, DAILY DOSE UNIT: MG
     Route: 042
     Dates: start: 20070521
  7. XYLOCAINE [Concomitant]
     Active Substance: LIDOCAINE HYDROCHLORIDE
     Indication: Anaesthesia
     Dosage: DAILY DOSE QUANTITY: 25, DAILY DOSE UNIT: MG
     Route: 042
     Dates: start: 20070521
  8. Dormicum [Concomitant]
     Indication: Anaesthesia
     Dosage: DAILY DOSE QUANTITY: 10, DAILY DOSE UNIT: MG
     Route: 042
     Dates: start: 20080521

REACTIONS (3)
  - Anaphylactic shock [Recovered/Resolved]
  - Acidosis [Recovered/Resolved]
  - Thrombosis [Unknown]

NARRATIVE: CASE EVENT DATE: 20070521
